FAERS Safety Report 7493533-5 (Version None)
Quarter: 2011Q2

REPORT INFORMATION
  Report Type: 
  Country: None (occurrence: None)
  Receive Date: 20110520
  Receipt Date: 20110514
  Transmission Date: 20111010
  Serious: Yes (Other)
  Sender: FDA-Public Use
  Company Number: US-PFIZER INC-2011098018

PATIENT
  Age: 72 Year
  Sex: Female

DRUGS (4)
  1. ZOLOFT [Suspect]
     Indication: STRESS
     Dosage: 50 MG, 1X/DAY
     Route: 048
     Dates: start: 20010101, end: 20110506
  2. DIFLUCAN [Concomitant]
     Dosage: UNK
  3. SERTRALINE HYDROCHLORIDE [Suspect]
     Indication: STRESS
     Dosage: 50 MG, 1X/DAY
     Route: 048
     Dates: start: 20080101
  4. CELEBREX [Concomitant]
     Dosage: UNK

REACTIONS (7)
  - MALAISE [None]
  - PRODUCT COUNTERFEIT [None]
  - ANGER [None]
  - CEREBROVASCULAR ACCIDENT [None]
  - INSOMNIA [None]
  - ANEURYSM [None]
  - STRESS [None]
